FAERS Safety Report 24045906 (Version 1)
Quarter: 2024Q3

REPORT INFORMATION
  Report Type: Spontaneous
  Country: US (occurrence: None)
  Receive Date: 20240702
  Receipt Date: 20240702
  Transmission Date: 20241016
  Serious: No
  Sender: Public
  Company Number: None

PATIENT
  Age: 65 Year
  Sex: Female
  Weight: 51.71 kg

DRUGS (2)
  1. KETOROLAC [Suspect]
     Active Substance: KETOROLAC TROMETHAMINE
  2. SYNTHROID [Concomitant]

REACTIONS (3)
  - Tinnitus [None]
  - Condition aggravated [None]
  - Wrist fracture [None]

NARRATIVE: CASE EVENT DATE: 20150814
